FAERS Safety Report 10386069 (Version 1)
Quarter: 2014Q1

REPORT INFORMATION
  Report Type: Spontaneous
  Country: US (occurrence: None)
  Receive Date: 20140306
  Receipt Date: 20140306
  Transmission Date: 20141002
  Serious: Yes (Hospitalization, Other)
  Sender: FDA-Public Use
  Company Number: 163-21880-13063668

PATIENT
  Age: 40 Year
  Sex: Male

DRUGS (6)
  1. REVLIMIB (LENALIDOMIDE) (CAPSULES) [Suspect]
     Indication: PLASMA CELL MYELOMA
     Dosage: 15MG, 21 IN 28 D, PO
     Route: 048
     Dates: start: 20130228
  2. OMEPRAZOLE [Concomitant]
  3. ACYCLOVIR (ACICLOVIR) [Concomitant]
  4. CALTRATE 600 +D (CALCITE D) [Concomitant]
  5. ASPIRIN (ACETYLSALICYLIC ACID) [Concomitant]
  6. COLACE (DOCUSATE SODIUM) [Concomitant]

REACTIONS (4)
  - Blood pressure abnormal [None]
  - Nausea [None]
  - Vomiting [None]
  - Drug dose omission [None]
